FAERS Safety Report 13785930 (Version 2)
Quarter: 2018Q1

REPORT INFORMATION
  Report Type: Spontaneous
  Country: IT (occurrence: IT)
  Receive Date: 20170725
  Receipt Date: 20180306
  Transmission Date: 20180508
  Serious: Yes (Life-Threatening, Other)
  Sender: FDA-Public Use
  Company Number: IT-BAXTER-2017BAX027053

PATIENT
  Age: 7 Year
  Sex: Male
  Weight: 27 kg

DRUGS (1)
  1. SEVOFLURANE BAXTER [Suspect]
     Active Substance: SEVOFLURANE
     Indication: GENERAL ANAESTHESIA
     Dosage: PHARMACEUTICAL FORM: INHALATION GAS
     Route: 055
     Dates: start: 20170620, end: 20170620

REACTIONS (2)
  - Epilepsy [Recovering/Resolving]
  - Hyperthermia malignant [Recovering/Resolving]

NARRATIVE: CASE EVENT DATE: 20170620
